FAERS Safety Report 9547035 (Version 1)
Quarter: 2013Q2

REPORT INFORMATION
  Report Type: Spontaneous
  Country: US (occurrence: None)
  Receive Date: 20130606
  Receipt Date: 20130606
  Transmission Date: 20140414
  Serious: No
  Sender: FDA-Public Use
  Company Number: 2013PROUSA02651

PATIENT
  Age: 92 Year
  Sex: Male
  Weight: 94.8 kg

DRUGS (18)
  1. PROVENGE [Suspect]
     Indication: PROSTATE CANCER METASTATIC
     Route: 042
     Dates: start: 20121206, end: 20121206
  2. ASPIRIN (ACETYLSALICYLIC ACID) [Concomitant]
  3. BYSTOLIC (NEBIVOLOL HYDROCHLORIDE) [Concomitant]
  4. DECADRON (DEXAMETHASONE) [Concomitant]
  5. FENTANYL CITRATE (FENTANYL CITRATE) [Concomitant]
  6. LACTULOSE (LACTULOSE) [Concomitant]
  7. LIDOCAINE (LIDOCAINE HYDROCHLORIDE) [Concomitant]
  8. MAGNESIUM CITRATE (MAGNESIUM CITRATE) [Concomitant]
  9. METFORMIN HCL (METFORMIN HYDROCHLORIDE) [Concomitant]
  10. MOBIC (MELOXICAM) [Concomitant]
  11. SAXAGLIPTIN (SAXAGLIPTIN) [Concomitant]
  12. PLAVIX (CLOPIDOGREL BISULFATE) [Concomitant]
  13. PRILOSEC (OMEPRAZOLE MAGNESIUM) [Concomitant]
  14. SIMVASTATIN (SIMVASTATIN) [Concomitant]
  15. TAMBOCOR (FLECAINIDE ACETATE) [Concomitant]
  16. TAMSULOSIN HYDROCHLORIDE (TAMSULOSIN HYDROCHLORIDE) [Concomitant]
  17. TORADOL (KETOROLAC TROMETHAMINE) [Concomitant]
  18. XGEVA (DENOSUMAB) [Concomitant]

REACTIONS (1)
  - Culture positive [None]
